FAERS Safety Report 20200486 (Version 1)
Quarter: 2021Q4

REPORT INFORMATION
  Report Type: Report from Study
  Country: LB (occurrence: LB)
  Receive Date: 20211217
  Receipt Date: 20211217
  Transmission Date: 20220303
  Serious: Yes (Hospitalization)
  Sender: FDA-Public Use
  Company Number: LB-ABBVIE-21K-093-4176923-00

PATIENT
  Age: 39 Year
  Sex: Female
  Weight: 99 kg

DRUGS (2)
  1. VENCLEXTA [Suspect]
     Active Substance: VENETOCLAX
     Indication: Acute myeloid leukaemia
     Dosage: 10 DAYS PER MONTH
     Route: 048
     Dates: start: 20210601, end: 20210702
  2. VENCLEXTA [Suspect]
     Active Substance: VENETOCLAX
     Dosage: 7 DAYS PER MONTH
     Route: 048
     Dates: start: 20210703, end: 202108

REACTIONS (4)
  - Pneumonia [Recovering/Resolving]
  - Viral infection [Recovering/Resolving]
  - Pneumothorax [Recovered/Resolved]
  - Hypercapnia [Recovered/Resolved]

NARRATIVE: CASE EVENT DATE: 20211101
